FAERS Safety Report 8922505 (Version 2)
Quarter: 2013Q2

REPORT INFORMATION
  Report Type: Spontaneous
  Country: MX (occurrence: MX)
  Receive Date: 20121123
  Receipt Date: 20130417
  Transmission Date: 20140414
  Serious: Yes (Hospitalization, Other)
  Sender: FDA-Public Use
  Company Number: PHHY2012MX105325

PATIENT
  Age: 70 Year
  Sex: Female

DRUGS (3)
  1. EXFORGE HCT [Suspect]
     Indication: HYPERTENSION
     Dosage: 1 DF (160/5/12.5 MG), DAILY
     Route: 048
     Dates: start: 201111
  2. OMEPRAZOLE [Concomitant]
     Indication: DYSPEPSIA
     Dosage: 1 DF, DAILY
     Route: 048
     Dates: start: 201209
  3. ITOPRIDE HYDROCHLORIDE [Concomitant]
     Indication: PROPHYLAXIS AGAINST GASTROINTESTINAL ULCER
     Dosage: 3 DF, ORAL
     Route: 048
     Dates: start: 201209

REACTIONS (8)
  - Intervertebral disc protrusion [Recovered/Resolved]
  - Gait disturbance [Recovered/Resolved]
  - Neck pain [Recovered/Resolved]
  - Arthralgia [Recovered/Resolved]
  - Contusion [Unknown]
  - Fall [Unknown]
  - Aphonia [Recovering/Resolving]
  - Hypotension [Unknown]
